FAERS Safety Report 25554297 (Version 1)
Quarter: 2025Q3

REPORT INFORMATION
  Report Type: Spontaneous
  Country: US (occurrence: None)
  Receive Date: 20250714
  Receipt Date: 20250714
  Transmission Date: 20251021
  Serious: Yes (Other)
  Sender: FDA-CTU
  Company Number: None

PATIENT
  Age: 49 Year
  Sex: Male
  Weight: 132.3 kg

DRUGS (2)
  1. ANTIPERSPIRANT DEODORANT [Suspect]
     Active Substance: ALUMINUM CHLOROHYDRATE
     Indication: Personal hygiene
     Dates: start: 20250521, end: 20250521
  2. DEVICE\INSULIN NOS [Concomitant]
     Active Substance: DEVICE\INSULIN NOS

REACTIONS (4)
  - Retching [None]
  - Respiration abnormal [None]
  - Cough [None]
  - Sleep disorder [None]

NARRATIVE: CASE EVENT DATE: 20250521
